FAERS Safety Report 24371770 (Version 1)
Quarter: 2024Q3

REPORT INFORMATION
  Report Type: Spontaneous
  Country: US (occurrence: None)
  Receive Date: 20240926
  Receipt Date: 20240926
  Transmission Date: 20241017
  Serious: Yes (Disabling)
  Sender: Public
  Company Number: None

PATIENT
  Age: 33 Year
  Sex: Female
  Weight: 50.4 kg

DRUGS (2)
  1. LEVOFLOXACIN [Suspect]
     Active Substance: LEVOFLOXACIN
     Indication: Ureaplasma infection
     Dosage: OTHER QUANTITY : 1 TABLET(S);?
     Route: 048
     Dates: start: 20240603, end: 20240610
  2. SLYND [Concomitant]
     Active Substance: DROSPIRENONE

REACTIONS (4)
  - Tendonitis [None]
  - Gait inability [None]
  - Burning sensation [None]
  - Muscle twitching [None]

NARRATIVE: CASE EVENT DATE: 20240608
